FAERS Safety Report 9470375 (Version 1)
Quarter: 2013Q3

REPORT INFORMATION
  Report Type: Spontaneous
  Country: US (occurrence: US)
  Receive Date: 20130822
  Receipt Date: 20130822
  Transmission Date: 20140515
  Serious: No
  Sender: FDA-Public Use
  Company Number: US-TEVA-427772USA

PATIENT
  Age: 56 Year
  Sex: Female
  Weight: 56.3 kg

DRUGS (8)
  1. NUVIGIL [Suspect]
     Indication: NARCOLEPSY
     Dosage: 30 MILLIGRAM DAILY; 1/2 TAB
     Route: 048
     Dates: start: 20130814
  2. NUVIGIL [Suspect]
     Dosage: QD
     Route: 048
  3. LEVOTHYROXINE [Concomitant]
     Indication: HYPOTHYROIDISM
  4. XANAX [Concomitant]
     Indication: ANXIETY
  5. PROVENTIL [Concomitant]
     Indication: DYSPNOEA
  6. SINGULAIR [Concomitant]
  7. ATROVENT [Concomitant]
  8. TOPAMAX [Concomitant]

REACTIONS (3)
  - Constipation [Not Recovered/Not Resolved]
  - Abdominal distension [Not Recovered/Not Resolved]
  - Thirst [Not Recovered/Not Resolved]
